FAERS Safety Report 15353033 (Version 2)
Quarter: 2018Q3

REPORT INFORMATION
  Report Type: Report from Study
  Country: CR (occurrence: CR)
  Receive Date: 20180905
  Receipt Date: 20180911
  Transmission Date: 20181010
  Serious: Yes (Other)
  Sender: FDA-Public Use
  Company Number: PHHY2017CR172358

PATIENT
  Sex: Female
  Weight: 50 kg

DRUGS (3)
  1. TASIGNA [Suspect]
     Active Substance: NILOTINIB
     Indication: CHRONIC MYELOID LEUKAEMIA
     Dosage: 200 MG, BID
     Route: 048
     Dates: start: 20170915, end: 20171003
  2. GLIVEC [Suspect]
     Active Substance: IMATINIB MESYLATE
     Indication: PRODUCT USED FOR UNKNOWN INDICATION
     Dosage: UNK
     Route: 065
  3. TASIGNA [Suspect]
     Active Substance: NILOTINIB
     Dosage: 200 MG, BID
     Route: 048
     Dates: end: 201712

REACTIONS (21)
  - Peripheral swelling [Unknown]
  - Incorrect dose administered [Unknown]
  - Swelling [Unknown]
  - Swelling face [Unknown]
  - Hepatic failure [Recovering/Resolving]
  - Malaise [Unknown]
  - Hypersensitivity [Recovered/Resolved]
  - Gastrointestinal disorder [Recovering/Resolving]
  - Chromaturia [Recovering/Resolving]
  - Diarrhoea [Unknown]
  - Jaundice [Recovering/Resolving]
  - Abdominal pain upper [Unknown]
  - Abdominal discomfort [Unknown]
  - Pruritus [Unknown]
  - Yellow skin [Recovered/Resolved]
  - Pain [Not Recovered/Not Resolved]
  - Drug intolerance [Unknown]
  - Cytogenetic analysis abnormal [Unknown]
  - Rash maculo-papular [Recovering/Resolving]
  - Alopecia [Unknown]
  - Fatigue [Unknown]
